FAERS Safety Report 6723238-7 (Version None)
Quarter: 2010Q2

REPORT INFORMATION
  Report Type: 
  Country: None (occurrence: None)
  Receive Date: 20100510
  Receipt Date: 20080124
  Transmission Date: 20101027
  Serious: No
  Sender: FDA-Public Use
  Company Number: 2008-00016

PATIENT
  Age: 54 Year
  Sex: Female

DRUGS (3)
  1. ZICAM COLD REMEDY NASAL GEL [Suspect]
     Dosage: INTRANASAL BID X 5 DAYS
     Dates: start: 20071223, end: 20071228
  2. ZOLOFT [Concomitant]
  3. HYDROCHLORATHIAZIDE [Concomitant]

REACTIONS (1)
  - ANOSMIA [None]
